FAERS Safety Report 4943671-3 (Version None)
Quarter: 2006Q1

REPORT INFORMATION
  Report Type: 
  Country: None (occurrence: None)
  Receive Date: 20060314
  Receipt Date: 20051006
  Transmission Date: 20060701
  Serious: Yes (Hospitalization)
  Sender: FDA-Public Use
  Company Number: US-MERCK-0510USA04234

PATIENT
  Age: 77 Year
  Sex: Male
  Weight: 74 kg

DRUGS (1)
  1. VIOXX [Suspect]
     Indication: ARTHRITIS
     Route: 048
     Dates: start: 19990101, end: 20030101

REACTIONS (20)
  - ABDOMINAL DISCOMFORT [None]
  - AORTIC RUPTURE [None]
  - AORTIC VALVE DISEASE [None]
  - BACK PAIN [None]
  - BENIGN PROSTATIC HYPERPLASIA [None]
  - BLOOD CREATININE INCREASED [None]
  - BRONCHIOLITIS [None]
  - CARDIAC ARREST [None]
  - CARDIAC FAILURE CONGESTIVE [None]
  - CHRONIC OBSTRUCTIVE PULMONARY DISEASE [None]
  - CORONARY ARTERY DISEASE [None]
  - CORONARY ARTERY STENOSIS [None]
  - HEART INJURY [None]
  - HYPERTENSION [None]
  - HYPOTENSION [None]
  - MUSCLE SPASMS [None]
  - RENAL CYST [None]
  - RENAL FAILURE [None]
  - SKIN CANCER [None]
  - SYNCOPE [None]
